FAERS Safety Report 6335514-0 (Version None)
Quarter: 2009Q3

REPORT INFORMATION
  Report Type: 
  Country: None (occurrence: None)
  Receive Date: 20090827
  Receipt Date: 20090812
  Transmission Date: 20100115
  Serious: Yes (Other)
  Sender: FDA-Public Use
  Company Number: DSA_40568_2009

PATIENT
  Age: 52 Year
  Sex: Male

DRUGS (1)
  1. ENALAPRIL MALEATE [Suspect]
     Indication: HYPERTENSION
     Dosage: 1.25 MG, , ORAL
     Route: 048

REACTIONS (3)
  - FEELING COLD [None]
  - HYPOHIDROSIS [None]
  - LOSS OF CONSCIOUSNESS [None]
